FAERS Safety Report 4595630-0 (Version None)
Quarter: 2005Q1

REPORT INFORMATION
  Report Type: 
  Country: None (occurrence: None)
  Receive Date: 20050224
  Receipt Date: 20050218
  Transmission Date: 20050727
  Serious: Yes (Hospitalization)
  Sender: FDA-Public Use
  Company Number: 2005-125347-NL

PATIENT
  Age: 61 Year
  Sex: Female

DRUGS (12)
  1. MIRTAZAPINE [Suspect]
     Dosage: 15 MG/30 MG
     Dates: start: 20020822, end: 20020822
  2. MIRTAZAPINE [Suspect]
     Dosage: 15 MG/30 MG
     Dates: start: 20020801, end: 20020829
  3. OLANZAPINE [Suspect]
     Dosage: 2.5 MG
     Dates: start: 20020823, end: 20040905
  4. EFFEXOR [Suspect]
     Dosage: 75 MG/150 MG
     Dates: start: 20020830, end: 20020830
  5. EFFEXOR [Suspect]
     Dosage: 75 MG/150 MG
     Dates: start: 20020831, end: 20020920
  6. LITHIUM CARBONATE CAP [Suspect]
     Dosage: DF/2 DF/1 DF/1.5 DF
     Dates: start: 20020923, end: 20020930
  7. LITHIUM CARBONATE CAP [Suspect]
     Dosage: DF/2 DF/1 DF/1.5 DF
     Dates: start: 20021001, end: 20021007
  8. LITHIUM CARBONATE CAP [Suspect]
     Dosage: DF/2 DF/1 DF/1.5 DF
     Dates: start: 20021009, end: 20021014
  9. LITHIUM CARBONATE CAP [Suspect]
     Dosage: DF/2 DF/1 DF/1.5 DF
     Dates: start: 20021015
  10. REBOXETINE [Suspect]
     Dosage: 4 MG
     Dates: start: 20020924, end: 20020926
  11. ZOPLICONE [Concomitant]
  12. LORAZEPAM [Concomitant]

REACTIONS (3)
  - ABDOMINAL PAIN UPPER [None]
  - BLOOD AMYLASE INCREASED [None]
  - LIPASE INCREASED [None]
